FAERS Safety Report 4554034-7 (Version None)
Quarter: 2005Q1

REPORT INFORMATION
  Report Type: 
  Country: None (occurrence: None)
  Receive Date: 20050118
  Receipt Date: 20041005
  Transmission Date: 20050727
  Serious: Yes (Disabling)
  Sender: FDA-Public Use
  Company Number: US-MERCK-0410USA00667

PATIENT
  Age: 79 Year
  Sex: Female

DRUGS (6)
  1. VIOXX [Suspect]
     Indication: ARTHRITIS
     Route: 048
  2. VIOXX [Suspect]
     Route: 048
  3. NORVASC [Concomitant]
     Route: 065
  4. BENICAR [Concomitant]
     Route: 065
  5. SYNTHROID [Concomitant]
     Route: 065
  6. SINEMET [Concomitant]
     Route: 065

REACTIONS (6)
  - ANXIETY [None]
  - BACK PAIN [None]
  - BENIGN COLONIC NEOPLASM [None]
  - COLONIC POLYP [None]
  - FALL [None]
  - NEUROPATHY PERIPHERAL [None]
